FAERS Safety Report 4538302-0 (Version None)
Quarter: 2004Q4

REPORT INFORMATION
  Report Type: 
  Country: None (occurrence: None)
  Receive Date: 20041221
  Receipt Date: 20041210
  Transmission Date: 20050328
  Serious: Yes (Hospitalization)
  Sender: FDA-Public Use
  Company Number: 2004-BP-11349BP

PATIENT
  Age: 7 Year
  Sex: Female

DRUGS (1)
  1. CATAPRES [Suspect]
     Indication: ATTENTION DEFICIT/HYPERACTIVITY DISORDER
     Dosage: 0.1 MG (0.1 MG, 1/2 TABLET BID), PO
     Route: 048
     Dates: start: 20041102

REACTIONS (3)
  - HEADACHE [None]
  - PARAESTHESIA [None]
  - SOMNOLENCE [None]
